FAERS Safety Report 19357558 (Version 1)
Quarter: 2021Q2

REPORT INFORMATION
  Report Type: Spontaneous
  Country: US (occurrence: US)
  Receive Date: 20210602
  Receipt Date: 20210602
  Transmission Date: 20210717
  Serious: Yes (Hospitalization)
  Sender: FDA-Public Use
  Company Number: None

PATIENT
  Age: 55 Year
  Sex: Female

DRUGS (1)
  1. DIMETHYL FUM DR CAP 240MG [Suspect]
     Active Substance: DIMETHYL FUMARATE
     Route: 048
     Dates: start: 20180416

REACTIONS (5)
  - Hypoaesthesia [None]
  - Dysphemia [None]
  - Multiple sclerosis [None]
  - Paraesthesia [None]
  - Hemiparesis [None]

NARRATIVE: CASE EVENT DATE: 20210430
